FAERS Safety Report 11356299 (Version 1)
Quarter: 2015Q3

REPORT INFORMATION
  Report Type: Spontaneous
  Country: FR (occurrence: FR)
  Receive Date: 20150807
  Receipt Date: 20150807
  Transmission Date: 20151125
  Serious: Yes (Hospitalization, Other)
  Sender: FDA-Public Use
  Company Number: FR-MYLANLABS-2015M1025580

PATIENT

DRUGS (2)
  1. OLMETEC [Suspect]
     Active Substance: OLMESARTAN MEDOXOMIL
     Indication: PRIMARY HYPERALDOSTERONISM
     Dosage: 10 MG, QD
     Route: 048
     Dates: start: 2011
  2. SPIRONOLACTONE MYLAN 25 MG, COMPRIM? PELLICUL? S?CABLE [Suspect]
     Active Substance: SPIRONOLACTONE
     Indication: PRIMARY HYPERALDOSTERONISM
     Dosage: 1 DF, QD
     Route: 048
     Dates: start: 2011, end: 20150728

REACTIONS (6)
  - Arrhythmia [Unknown]
  - Extrasystoles [Unknown]
  - Hypertension [Unknown]
  - Gynaecomastia [Not Recovered/Not Resolved]
  - Vertigo [Unknown]
  - Lipoma [Not Recovered/Not Resolved]

NARRATIVE: CASE EVENT DATE: 2011
